FAERS Safety Report 5853977-1 (Version None)
Quarter: 2008Q3

REPORT INFORMATION
  Report Type: 
  Country: None (occurrence: None)
  Receive Date: 20080822
  Receipt Date: 20080815
  Transmission Date: 20090109
  Serious: Yes (Hospitalization)
  Sender: FDA-Public Use
  Company Number: DE-ABBOTT-06P-062-0327434-00

PATIENT
  Sex: Female

DRUGS (9)
  1. HUMIRA [Suspect]
     Indication: RHEUMATOID ARTHRITIS
     Route: 058
     Dates: start: 20040108, end: 20060125
  2. HUMIRA [Suspect]
     Dates: start: 20060405
  3. ATENOLOL [Concomitant]
     Indication: HYPERTENSION
     Dates: start: 20040101
  4. CANDESARTAN CILEXETIL [Concomitant]
     Indication: HYPERTENSION
     Dates: start: 20020101
  5. ESOMEPRAZOLE MAGNESIUM [Concomitant]
     Indication: GASTROOESOPHAGEAL REFLUX DISEASE
     Dates: start: 20000901
  6. LINOLA-FETT [Concomitant]
     Indication: DRY SKIN
     Dosage: APPROXIMATELY 3CM
     Dates: start: 20040101
  7. DEXPANTHENOL [Concomitant]
     Indication: NASAL DRYNESS
     Dosage: APPROXIMATELY 0.5CM
     Route: 061
     Dates: start: 20050815
  8. ADALIMUMAB [Concomitant]
     Indication: RHEUMATOID ARTHRITIS
     Dates: start: 20031010
  9. METHOTREXATE SODIUM [Concomitant]
     Indication: RHEUMATOID ARTHRITIS
     Dates: start: 20070101

REACTIONS (1)
  - DIVERTICULUM [None]
